FAERS Safety Report 15151671 (Version 1)
Quarter: 2018Q3

REPORT INFORMATION
  Report Type: Spontaneous
  Country: US (occurrence: US)
  Receive Date: 20180619
  Receipt Date: 20180619
  Transmission Date: 20181010
  Serious: No
  Sender: FDA-Public Use
  Company Number: None

PATIENT
  Age: 54 Year
  Sex: Female
  Weight: 108.86 kg

DRUGS (12)
  1. KYOLIC 103 [Concomitant]
  2. VRAYLAR [Concomitant]
     Active Substance: CARIPRAZINE
  3. MULTIVITAMIN [Concomitant]
     Active Substance: VITAMINS
  4. CLONIDINE. [Concomitant]
     Active Substance: CLONIDINE
  5. DIVALPROEX SODIUM ER [Suspect]
     Active Substance: DIVALPROEX SODIUM
     Indication: BIPOLAR DISORDER
     Dosage: 2 TABLETS DAILY A.M. + P.M. BY MOUTH?
     Route: 048
     Dates: start: 2014
  6. ZYRTEC [Concomitant]
     Active Substance: CETIRIZINE HYDROCHLORIDE
  7. STRESS B COMPLEX [Concomitant]
  8. CURAMIN [Concomitant]
     Active Substance: HERBALS
  9. BUPLEURUM LIVER CLEANSE [Concomitant]
  10. CLONAZEPAM. [Concomitant]
     Active Substance: CLONAZEPAM
  11. RASPBERRY KETONES [Concomitant]
     Active Substance: RASPBERRY KETONE
  12. TYROSINE [Concomitant]
     Active Substance: TYROSINE

REACTIONS (7)
  - Gait disturbance [None]
  - Cough [None]
  - Balance disorder [None]
  - Panic attack [None]
  - Therapy change [None]
  - Dysphonia [None]
  - Blister [None]
